FAERS Safety Report 7594284-9 (Version None)
Quarter: 2011Q3

REPORT INFORMATION
  Report Type: 
  Country: None (occurrence: None)
  Receive Date: 20110706
  Receipt Date: 20110627
  Transmission Date: 20111222
  Serious: Yes (Hospitalization, Other)
  Sender: FDA-Public Use
  Company Number: GB-ASTRAZENECA-2011SE33767

PATIENT
  Age: 52 Year
  Sex: Female
  Weight: 111.4 kg

DRUGS (12)
  1. ATENOLOL [Concomitant]
     Dates: start: 20110218
  2. LANSOPRAZOLE [Concomitant]
     Dates: start: 20110218
  3. ALBUTEROL [Concomitant]
     Dates: start: 20110413
  4. LISINOPRIL [Suspect]
     Route: 048
  5. AMITRIPTYLINE HCL [Concomitant]
     Dates: start: 20110208
  6. PREDNISOLONE [Concomitant]
     Dates: start: 20110308
  7. CANDESARTAN CILEXETIL [Suspect]
     Route: 048
     Dates: start: 20110218
  8. BENDROFLUMETHIAZIDE [Concomitant]
     Dates: start: 20110218
  9. ZAPAIN [Concomitant]
     Dates: start: 20110527
  10. INDOMETHACIN SODIUM [Concomitant]
     Dates: start: 20110218
  11. DOXAZOSIN MESYLATE [Concomitant]
  12. BUDESONIDE [Concomitant]
     Dates: start: 20110218

REACTIONS (2)
  - VISION BLURRED [None]
  - SWOLLEN TONGUE [None]
